FAERS Safety Report 4362855-9 (Version None)
Quarter: 2004Q2

REPORT INFORMATION
  Report Type: 
  Country: None (occurrence: None)
  Receive Date: 20040518
  Receipt Date: 20040506
  Transmission Date: 20050107
  Serious: Yes (Other)
  Sender: FDA-Public Use
  Company Number: 2004-BP-01330NB

PATIENT
  Age: 70 Year
  Sex: Female

DRUGS (9)
  1. MOBIC [Suspect]
     Indication: RHEUMATOID ARTHRITIS
     Dosage: 10 MG
     Route: 048
     Dates: start: 20040106
  2. RHEUMATREX (METHOTREXATE SODIUM) (KA) [Concomitant]
  3. CALCIUM LACTATE (CALCIUM LACTATE) [Concomitant]
  4. ALFAROL (ALFACALCIDOL) (KA) [Concomitant]
  5. BASEN (VOGLIBOSE) (TA) [Concomitant]
  6. GLIMICRON (GLICAZINE) (TA) [Concomitant]
  7. PRENISOLONE (TA) [Concomitant]
  8. FOLIAMIN  (FOLIC ACID) (TA) [Concomitant]
  9. ACTONEL (TA) [Concomitant]

REACTIONS (3)
  - CYSTITIS HAEMORRHAGIC [None]
  - THROMBOSIS [None]
  - VIRAL INFECTION [None]
